FAERS Safety Report 5738187-0 (Version None)
Quarter: 2008Q2

REPORT INFORMATION
  Report Type: 
  Country: None (occurrence: None)
  Receive Date: 20080514
  Receipt Date: 20080502
  Transmission Date: 20081010
  Serious: Yes (Other)
  Sender: FDA-Public Use
  Company Number: BR-PFIZER INC-2007087744

PATIENT
  Sex: Female
  Weight: 90 kg

DRUGS (6)
  1. CHANTIX [Suspect]
     Indication: TOBACCO USER
     Route: 048
     Dates: start: 20071002, end: 20071009
  2. CHANTIX [Suspect]
     Indication: SMOKING CESSATION THERAPY
  3. PAROXETINE HCL [Concomitant]
  4. GINKGO BILOBA [Concomitant]
  5. RIVOTRIL [Concomitant]
     Route: 048
  6. GLUCOSAMINE W/CHONDROITIN SULFATES [Concomitant]
     Route: 048

REACTIONS (8)
  - CONFUSIONAL STATE [None]
  - FATIGUE [None]
  - FEELING DRUNK [None]
  - GAIT DISTURBANCE [None]
  - HYDROCEPHALUS [None]
  - SMOKER [None]
  - SOPOR [None]
  - SURGERY [None]
